FAERS Safety Report 18405329 (Version 1)
Quarter: 2020Q4

REPORT INFORMATION
  Report Type: Spontaneous
  Country: US (occurrence: US)
  Receive Date: 20201020
  Receipt Date: 20201020
  Transmission Date: 20210114
  Serious: No
  Sender: FDA-Public Use
  Company Number: None

PATIENT
  Age: 53 Year
  Sex: Female
  Weight: 110 kg

DRUGS (2)
  1. ON-Q PUMP [Suspect]
     Active Substance: DEVICE
     Dates: start: 20200929
  2. ROPIVACAINE 0.5% [Suspect]
     Active Substance: ROPIVACAINE

REACTIONS (2)
  - Incorrect drug administration rate [None]
  - Device malfunction [None]

NARRATIVE: CASE EVENT DATE: 20200930
